FAERS Safety Report 6991707-0 (Version None)
Quarter: 2010Q3

REPORT INFORMATION
  Report Type: 
  Country: None (occurrence: None)
  Receive Date: 20100917
  Receipt Date: 20100913
  Transmission Date: 20110219
  Serious: Yes (Life-Threatening, Hospitalization)
  Sender: FDA-Public Use
  Company Number: PHHY2010JP38664

PATIENT
  Sex: Female
  Weight: 75 kg

DRUGS (3)
  1. ZOMETA [Suspect]
     Indication: BREAST CANCER RECURRENT
     Dosage: 4 MG (PER ADMINISTRATION)
     Route: 041
     Dates: start: 20090710, end: 20100609
  2. LEUPLIN [Suspect]
     Indication: BREAST CANCER RECURRENT
     Dosage: UNK
     Route: 058
     Dates: start: 20090710, end: 20100609
  3. FARESTON [Suspect]
     Indication: BREAST CANCER RECURRENT
     Dosage: 120 MG, DAILY
     Route: 048
     Dates: start: 20090410, end: 20100618

REACTIONS (4)
  - CELL MARKER INCREASED [None]
  - COUGH [None]
  - INTERSTITIAL LUNG DISEASE [None]
  - PRODUCTIVE COUGH [None]
